FAERS Safety Report 8321894-3 (Version None)
Quarter: 2012Q2

REPORT INFORMATION
  Report Type: 
  Country: None (occurrence: None)
  Receive Date: 20120426
  Receipt Date: 20120412
  Transmission Date: 20120825
  Serious: Yes (Other)
  Sender: FDA-Public Use
  Company Number: 2012AP001026

PATIENT

DRUGS (2)
  1. CARBIDOPA + LEVODOPA [Suspect]
     Indication: PRODUCT USED FOR UNKNOWN INDICATION
     Dosage: TAB
  2. AMITRIPTYLINE HYDROCHLORIDE [Concomitant]
     Indication: PRODUCT USED FOR UNKNOWN INDICATION
     Dosage: TAB

REACTIONS (1)
  - JAW FRACTURE [None]
